FAERS Safety Report 9963345 (Version 1)
Quarter: 2014Q1

REPORT INFORMATION
  Report Type: Report from Study
  Country: US (occurrence: US)
  Receive Date: 20140305
  Receipt Date: 20140305
  Transmission Date: 20141002
  Serious: No
  Sender: FDA-Public Use
  Company Number: US-ABBVIE-13P-163-1119535-00

PATIENT
  Age: 62 Year
  Sex: Male

DRUGS (5)
  1. HUMIRA [Suspect]
     Indication: CROHN^S DISEASE
     Dates: start: 20130402, end: 201306
  2. LISINOPRIL [Concomitant]
     Indication: HYPERTENSION
     Dosage: 1 DAILY
  3. SIMVASTATIN [Concomitant]
     Indication: BLOOD CHOLESTEROL INCREASED
     Dosage: 1 DAILY
  4. VENLAFAXINE [Concomitant]
     Indication: DEPRESSION
     Dosage: 1 DAILY
  5. VENLAFAXINE [Concomitant]
     Indication: ANXIETY

REACTIONS (6)
  - Arthralgia [Recovering/Resolving]
  - Headache [Recovering/Resolving]
  - Heart rate increased [Recovering/Resolving]
  - Hypertension [Recovering/Resolving]
  - Gastritis [Recovering/Resolving]
  - Gastrooesophageal reflux disease [Recovering/Resolving]
